FAERS Safety Report 11943018 (Version 1)
Quarter: 2016Q1

REPORT INFORMATION
  Report Type: Spontaneous
  Country: US (occurrence: US)
  Receive Date: 20160125
  Receipt Date: 20160125
  Transmission Date: 20160526
  Serious: No
  Sender: FDA-Public Use
  Company Number: US-UNITED THERAPEUTICS-UNT-2015-010235

PATIENT
  Sex: Male
  Weight: 58.96 kg

DRUGS (2)
  1. REMODULIN [Suspect]
     Active Substance: TREPROSTINIL
     Indication: PULMONARY HYPERTENSION
     Dosage: 0.022 ?G/KG/MIN, CONTINUING
     Route: 041
     Dates: start: 20150706
  2. REMODULIN [Suspect]
     Active Substance: TREPROSTINIL
     Dosage: 0.020 ?G/KG/MIN
     Route: 058

REACTIONS (8)
  - Infusion site oedema [Recovering/Resolving]
  - Infusion site erythema [Recovering/Resolving]
  - Insomnia [Unknown]
  - Infusion site pain [Recovering/Resolving]
  - Infusion site pruritus [Recovering/Resolving]
  - Fall [Unknown]
  - Disturbance in attention [Unknown]
  - Malaise [Unknown]

NARRATIVE: CASE EVENT DATE: 2015
